FAERS Safety Report 5861326-8 (Version None)
Quarter: 2008Q3

REPORT INFORMATION
  Report Type: 
  Country: None (occurrence: None)
  Receive Date: 20080826
  Receipt Date: 20080814
  Transmission Date: 20090109
  Serious: Yes (Hospitalization)
  Sender: FDA-Public Use
  Company Number: FABR-1000380

PATIENT
  Age: 82 Year
  Sex: Male
  Weight: 85 kg

DRUGS (2)
  1. FABRAZYME [Suspect]
     Indication: FABRY'S DISEASE
     Dosage: 85 MG,Q2W, INTRAVENOUS
     Route: 042
     Dates: start: 20061201
  2. FABRAZYME [Suspect]

REACTIONS (1)
  - MYOCARDIAL INFARCTION [None]
